FAERS Safety Report 22614495 (Version 1)
Quarter: 2023Q2

REPORT INFORMATION
  Report Type: Spontaneous
  Country: DE (occurrence: DE)
  Receive Date: 20230619
  Receipt Date: 20230619
  Transmission Date: 20230722
  Serious: Yes (Other)
  Sender: FDA-Public Use
  Company Number: None

PATIENT

DRUGS (1)
  1. NUCYNTA [Suspect]
     Active Substance: TAPENTADOL HYDROCHLORIDE
     Indication: Pain
     Dosage: 50 MILLIGRAM, 2/DAY
     Route: 048
     Dates: start: 20220828, end: 20230507

REACTIONS (10)
  - Angina pectoris [Recovering/Resolving]
  - Pulse abnormal [Recovering/Resolving]
  - Pain in jaw [Recovering/Resolving]
  - Muscular weakness [Recovering/Resolving]
  - Spinal pain [Recovering/Resolving]
  - Cardiac discomfort [Recovering/Resolving]
  - Vasospasm [Recovering/Resolving]
  - Fear of death [Recovering/Resolving]
  - Muscle spasms [Recovering/Resolving]
  - Dyspnoea [Recovering/Resolving]

NARRATIVE: CASE EVENT DATE: 20230420
